FAERS Safety Report 5156000-X (Version None)
Quarter: 2006Q4

REPORT INFORMATION
  Report Type: 
  Country: None (occurrence: None)
  Receive Date: 20061122
  Receipt Date: 20061115
  Transmission Date: 20070319
  Serious: Yes (Other)
  Sender: FDA-Public Use
  Company Number: ES-JNJFOC-20061104178

PATIENT
  Sex: Female
  Weight: 58 kg

DRUGS (3)
  1. ORTHO EVRA [Suspect]
     Indication: CONTRACEPTION
     Route: 062
  2. ACETYLCISTEINE [Concomitant]
     Indication: SINUSITIS
     Route: 048
  3. MOVALIS [Concomitant]
     Indication: ARTHRALGIA
     Route: 048

REACTIONS (2)
  - MUSCLE SPASMS [None]
  - PERIPHERAL COLDNESS [None]
